FAERS Safety Report 13391724 (Version 2)
Quarter: 2017Q2

REPORT INFORMATION
  Report Type: Spontaneous
  Country: US (occurrence: US)
  Receive Date: 20170331
  Receipt Date: 20170406
  Transmission Date: 20170830
  Serious: Yes (Hospitalization, Other)
  Sender: FDA-Public Use
  Company Number: US-PFIZER INC-2017130079

PATIENT
  Age: 30 Year
  Sex: Male

DRUGS (5)
  1. DEXTROMETHORPHAN HYDROBROMIDE. [Suspect]
     Active Substance: DEXTROMETHORPHAN HYDROBROMIDE
     Dosage: UNK
  2. DIPHENHYDRAMINE HCL [Suspect]
     Active Substance: DIPHENHYDRAMINE HYDROCHLORIDE
     Dosage: UNK
  3. PAROXETINE. [Suspect]
     Active Substance: PAROXETINE
     Dosage: UNK
  4. QUETIAPINE. [Suspect]
     Active Substance: QUETIAPINE
     Dosage: UNK
  5. HYDROXYZINE PAMOATE. [Suspect]
     Active Substance: HYDROXYZINE PAMOATE
     Dosage: UNK

REACTIONS (4)
  - Somnolence [Recovered/Resolved]
  - Overdose [Recovered/Resolved]
  - Suicide attempt [Recovered/Resolved]
  - Hypoxia [Recovered/Resolved]
